FAERS Safety Report 14146329 (Version 4)
Quarter: 2018Q4

REPORT INFORMATION
  Report Type: Report from Study
  Country: JP (occurrence: JP)
  Receive Date: 20171031
  Receipt Date: 20181015
  Transmission Date: 20190204
  Serious: Yes (Hospitalization, Disabling, Other)
  Sender: FDA-Public Use
  Company Number: JP-ASTELLAS-2017US036537

PATIENT
  Age: 82 Year
  Sex: Female
  Weight: 34 kg

DRUGS (12)
  1. WARFARIN [Concomitant]
     Active Substance: WARFARIN
     Dosage: 1.2 MG, UNKNOWN FREQ. (THE FRACTIONATION DOSE FREQUENCY IS UNCERTAIN.)
     Route: 048
     Dates: start: 20171016, end: 20171018
  2. ERLOTINIB [Suspect]
     Active Substance: ERLOTINIB
     Indication: NON-SMALL CELL LUNG CANCER
  3. RABEPRAZOLE SODIUM. [Concomitant]
     Active Substance: RABEPRAZOLE SODIUM
     Indication: GASTRITIS PROPHYLAXIS
     Dosage: UNK, UNKNOWN FREQ. (THE FRACTIONATION DOSE FREQUENCY IS UNCERTAIN.)
     Route: 065
  4. FUROSEMIDE. [Concomitant]
     Active Substance: FUROSEMIDE
     Indication: HYPERTENSION
     Dosage: UNK, UNKNOWN FREQ. (THE FRACTIONATION DOSE FREQUENCY IS UNCERTAIN.)
     Route: 065
  5. WARFARIN [Concomitant]
     Active Substance: WARFARIN
     Indication: AORTIC VALVE REPLACEMENT
     Dosage: 1.5 MG, UNKNOWN FREQ. (THE FRACTIONATION DOSE FREQUENCY IS UNCERTAIN.)
     Route: 048
     Dates: end: 20171012
  6. WARFARIN [Concomitant]
     Active Substance: WARFARIN
     Dosage: 1.5 MG, UNKNOWN FREQ. (THE FRACTIONATION DOSE FREQUENCY IS UNCERTAIN.)
     Route: 048
     Dates: start: 20171018, end: 20171019
  7. VERAPAMIL HYDROCHLORIDE. [Concomitant]
     Active Substance: VERAPAMIL HYDROCHLORIDE
     Indication: ATRIAL FIBRILLATION
     Dosage: UNK, UNKNOWN FREQ. (THE FRACTIONATION DOSE FREQUENCY IS UNCERTAIN.)
     Route: 065
  8. ERLOTINIB [Suspect]
     Active Substance: ERLOTINIB
     Indication: LUNG ADENOCARCINOMA
     Route: 048
     Dates: start: 20160721
  9. WARFARIN [Concomitant]
     Active Substance: WARFARIN
     Dosage: 2 MG, UNKNOWN FREQ. (THE FRACTIONATION DOSE FREQUENCY IS UNCERTAIN.)
     Route: 048
     Dates: start: 20171020
  10. AZOSEMIDE [Concomitant]
     Active Substance: AZOSEMIDE
     Indication: HYPERTENSION
     Dosage: UNK, UNKNOWN FREQ. (THE FRACTIONATION DOSE FREQUENCY IS UNCERTAIN.)
     Route: 065
  11. HERBESSER [Concomitant]
     Active Substance: DILTIAZEM HYDROCHLORIDE
     Indication: HYPERTENSION
     Dosage: UNK, UNKNOWN FREQ. (THE FRACTIONATION DOSE FREQUENCY IS UNCERTAIN.)
     Route: 065
  12. KEFRAL [Concomitant]
     Active Substance: CEFACLOR
     Indication: ENDOCARDITIS
     Dosage: UNK, UNKNOWN FREQ. (THE FRACTIONATION DOSE FREQUENCY IS UNCERTAIN.)
     Route: 065

REACTIONS (5)
  - Fall [Unknown]
  - Femur fracture [Recovered/Resolved with Sequelae]
  - Dermatitis acneiform [Recovered/Resolved]
  - Femoral neck fracture [Recovered/Resolved with Sequelae]
  - Stomatitis [Recovered/Resolved]

NARRATIVE: CASE EVENT DATE: 20160801
